FAERS Safety Report 9116871 (Version 9)
Quarter: 2014Q3

REPORT INFORMATION
  Report Type: Report from Study
  Country: CA (occurrence: CA)
  Receive Date: 20130225
  Receipt Date: 20140722
  Transmission Date: 20150326
  Serious: Yes (Hospitalization, Other)
  Sender: FDA-Public Use
  Company Number: PHHY2012CA034048

PATIENT
  Age: 75 Year
  Sex: Female

DRUGS (7)
  1. TAMOXIFEN [Concomitant]
     Active Substance: TAMOXIFEN
     Dosage: UNK UKN, UNK
  2. TYLENOL [Concomitant]
     Active Substance: ACETAMINOPHEN
     Dosage: UNK UKN, UNK
  3. SANDOSTATIN LAR DEPOT [Suspect]
     Active Substance: OCTREOTIDE ACETATE
     Dosage: 30 MG, QMO
     Route: 030
  4. IRON [Concomitant]
     Active Substance: IRON
     Dosage: UNK UKN, UNK
     Route: 041
  5. SANDOSTATIN LAR DEPOT [Suspect]
     Active Substance: OCTREOTIDE ACETATE
     Dosage: 40 MG, QMO
     Route: 030
  6. TAMOXIFEN [Concomitant]
     Active Substance: TAMOXIFEN
     Dosage: UNK UKN, UNK
  7. SANDOSTATIN LAR DEPOT [Suspect]
     Active Substance: OCTREOTIDE ACETATE
     Indication: CARCINOID TUMOUR
     Dosage: 40 MG, QMO
     Route: 030
     Dates: start: 20101028

REACTIONS (25)
  - Sepsis [Unknown]
  - Bacterial test positive [Unknown]
  - Abdominal pain upper [Unknown]
  - Weight decreased [Unknown]
  - Dizziness [Unknown]
  - Emphysema [Unknown]
  - Chills [Unknown]
  - Malaise [Unknown]
  - Nausea [Recovering/Resolving]
  - Decreased appetite [Unknown]
  - Food intolerance [Unknown]
  - Blood pressure decreased [Unknown]
  - Peripheral coldness [Unknown]
  - Diarrhoea [Unknown]
  - Neoplasm [Unknown]
  - Intestinal obstruction [Unknown]
  - Lethargy [Unknown]
  - Weight increased [Unknown]
  - Stoma site haemorrhage [Unknown]
  - Asthenia [Unknown]
  - Stoma site irritation [Unknown]
  - Fatigue [Unknown]
  - Bacterial infection [Unknown]
  - Stoma site discomfort [Unknown]
  - Lung disorder [Unknown]

NARRATIVE: CASE EVENT DATE: 20130123
